FAERS Safety Report 25353240 (Version 1)
Quarter: 2025Q2

REPORT INFORMATION
  Report Type: Spontaneous
  Country: US (occurrence: US)
  Receive Date: 20250523
  Receipt Date: 20250523
  Transmission Date: 20250716
  Serious: Yes (Other)
  Sender: COSETTE PHARMACEUTICALS INC
  Company Number: US-COSETTE-CP2025US000506

PATIENT
  Age: 59 Year
  Sex: Male

DRUGS (5)
  1. ROPINIROLE HYDROCHLORIDE [Suspect]
     Active Substance: ROPINIROLE HYDROCHLORIDE
     Indication: Parkinsonism
     Route: 048
  2. ROPINIROLE HYDROCHLORIDE [Suspect]
     Active Substance: ROPINIROLE HYDROCHLORIDE
     Route: 048
  3. CARBIDOPA\LEVODOPA [Suspect]
     Active Substance: CARBIDOPA\LEVODOPA
     Indication: Parkinsonism
  4. HERBALS [Suspect]
     Active Substance: HERBALS
     Indication: Supplementation therapy
     Route: 065
  5. PIMAVANSERIN [Concomitant]
     Active Substance: PIMAVANSERIN
     Indication: Product used for unknown indication
     Route: 065

REACTIONS (2)
  - Parkinson^s disease psychosis [Recovering/Resolving]
  - Drug interaction [Unknown]
